FAERS Safety Report 10923141 (Version 2)
Quarter: 2015Q1

REPORT INFORMATION
  Report Type: Spontaneous
  Country: DE (occurrence: DE)
  Receive Date: 20150317
  Receipt Date: 20150327
  Transmission Date: 20150721
  Serious: Yes (Hospitalization)
  Sender: FDA-Public Use
  Company Number: GXKR2015DE001575

PATIENT
  Age: 82 Year
  Sex: Male
  Weight: 75 kg

DRUGS (3)
  1. CARVEDILOL HEXAL [Suspect]
     Active Substance: CARVEDILOL
     Indication: PORTAL HYPERTENSION
     Dosage: 6.25 MG, BID
     Route: 048
     Dates: start: 201501
  2. HYDROCHLOROTHIAZIDE. [Concomitant]
     Active Substance: HYDROCHLOROTHIAZIDE
     Indication: OEDEMA
     Dosage: 25 MG, QD
     Route: 048
  3. URSOFALK [Concomitant]
     Active Substance: URSODIOL
     Indication: HEPATIC CIRRHOSIS
     Dosage: 250 MG, QID
     Route: 048

REACTIONS (2)
  - Acute kidney injury [Not Recovered/Not Resolved]
  - Rhabdomyolysis [Not Recovered/Not Resolved]

NARRATIVE: CASE EVENT DATE: 20150215
